FAERS Safety Report 6565951-0 (Version None)
Quarter: 2010Q1

REPORT INFORMATION
  Report Type: 
  Country: None (occurrence: None)
  Receive Date: 20100129
  Receipt Date: 20100129
  Transmission Date: 20100710
  Serious: No
  Sender: FDA-Public Use
  Company Number: None

PATIENT
  Age: 33 Year
  Sex: Female
  Weight: 66.6788 kg

DRUGS (1)
  1. MIRENA [Suspect]

REACTIONS (3)
  - ALOPECIA [None]
  - BACK PAIN [None]
  - WEIGHT DECREASED [None]
